FAERS Safety Report 4926942-6 (Version None)
Quarter: 2006Q1

REPORT INFORMATION
  Report Type: 
  Country: None (occurrence: None)
  Receive Date: 20060228
  Receipt Date: 20050915
  Transmission Date: 20060701
  Serious: Yes (Other)
  Sender: FDA-Public Use
  Company Number: US-GLAXOSMITHKLINE-A0574439A

PATIENT
  Age: 34 Year
  Sex: Female

DRUGS (4)
  1. LAMICTAL [Suspect]
     Indication: BIPOLAR DISORDER
     Dosage: 25MG PER DAY
     Route: 048
     Dates: start: 20050621, end: 20050630
  2. PROZAC [Concomitant]
     Dosage: 40MG PER DAY
     Route: 048
     Dates: start: 20050301, end: 20050630
  3. XANAX [Concomitant]
     Dosage: .25MG THREE TIMES PER DAY
     Route: 048
     Dates: start: 20050301, end: 20050630
  4. SEROQUEL [Concomitant]
     Dosage: 25MG AT NIGHT
     Route: 048
     Dates: start: 20050621, end: 20050630

REACTIONS (7)
  - MOUTH ULCERATION [None]
  - NAUSEA [None]
  - PHARYNGEAL ULCERATION [None]
  - PYREXIA [None]
  - RASH [None]
  - STEVENS-JOHNSON SYNDROME [None]
  - VOMITING [None]
